FAERS Safety Report 8588643-5 (Version None)
Quarter: 2012Q3

REPORT INFORMATION
  Report Type: 
  Country: None (occurrence: None)
  Receive Date: 20120813
  Receipt Date: 20120806
  Transmission Date: 20120928
  Serious: Yes (Hospitalization, Other)
  Sender: FDA-Public Use
  Company Number: PHHY2012MX069089

PATIENT
  Age: 68 Year
  Sex: Female

DRUGS (7)
  1. VOLTAREN [Concomitant]
     Indication: PAIN
     Dosage: 1 DF, PRN
     Dates: start: 20050601
  2. METFORMIN HYDROCHLORIDE [Suspect]
     Indication: BLOOD GLUCOSE
     Dosage: 1 DF (500 MG), DAILY
     Dates: start: 20100701
  3. ASPIRIN [Concomitant]
     Indication: INFARCTION
     Dosage: 1 DF, DAILY
     Dates: start: 20000701
  4. TENORMIN [Concomitant]
     Indication: HYPERTENSION
     Dosage: 2 DF, DAILY
     Dates: start: 20090101
  5. DIOSMIN W/HESPERIDIN [Concomitant]
     Indication: CARDIOVASCULAR DISORDER
     Dosage: 1 DF, DAILY
     Dates: start: 20090701
  6. PANTOPRAZOLE [Concomitant]
     Indication: GASTRITIS
     Dosage: 1 DF, DAILY
     Dates: start: 20060801
  7. DIOVAN HCT [Suspect]
     Indication: HYPERTENSION
     Dosage: 1 DF (80/12.5 MG), DAILY
     Dates: start: 20100701

REACTIONS (5)
  - BLOOD PRESSURE DECREASED [None]
  - BLOOD URIC ACID ABNORMAL [None]
  - DECREASED APPETITE [None]
  - GASTRITIS [None]
  - BLOOD CHOLESTEROL ABNORMAL [None]
